FAERS Safety Report 6804337-8 (Version None)
Quarter: 2010Q2

REPORT INFORMATION
  Report Type: 
  Country: None (occurrence: None)
  Receive Date: 20100628
  Receipt Date: 20070319
  Transmission Date: 20101027
  Serious: Yes (Other)
  Sender: FDA-Public Use
  Company Number: US-PFIZER INC-2007012600

PATIENT
  Sex: Female
  Weight: 100.2 kg

DRUGS (8)
  1. GEODON [Suspect]
     Indication: MAJOR DEPRESSION
     Dosage: BID: EVERY DAY
     Route: 048
     Dates: start: 20061010, end: 20070208
  2. GEODON [Suspect]
     Indication: PSYCHOTIC DISORDER
  3. ESKALITH - SLOW RELEASE [Concomitant]
  4. GABAPENTIN [Concomitant]
  5. SEROQUEL [Concomitant]
  6. EFFEXOR XR [Concomitant]
  7. AMBIEN [Concomitant]
  8. PRAZOSIN HCL [Concomitant]

REACTIONS (1)
  - TARDIVE DYSKINESIA [None]
